FAERS Safety Report 7021319-4 (Version None)
Quarter: 2010Q3

REPORT INFORMATION
  Report Type: 
  Country: None (occurrence: None)
  Receive Date: 20100929
  Receipt Date: 20100917
  Transmission Date: 20110219
  Serious: Yes (Other)
  Sender: FDA-Public Use
  Company Number: US-PFIZER INC-2008026204

PATIENT
  Age: 47 Year
  Sex: Male

DRUGS (1)
  1. VFEND [Suspect]
     Indication: OSTEOMYELITIS FUNGAL
     Dosage: UNK
     Dates: start: 20070101, end: 20080101

REACTIONS (2)
  - ABDOMINAL DISCOMFORT [None]
  - LIVER DISORDER [None]
